FAERS Safety Report 7108219-6 (Version None)
Quarter: 2010Q4

REPORT INFORMATION
  Report Type: 
  Country: None (occurrence: None)
  Receive Date: 20101117
  Receipt Date: 20101105
  Transmission Date: 20110411
  Serious: Yes (Other)
  Sender: FDA-Public Use
  Company Number: PHHY2010US75473

PATIENT
  Age: 72 Year
  Sex: Male

DRUGS (1)
  1. AFINITOR [Suspect]
     Dosage: UNK
     Route: 048

REACTIONS (3)
  - HEPATOMEGALY [None]
  - MALIGNANT NEOPLASM PROGRESSION [None]
  - METASTASES TO LUNG [None]
